FAERS Safety Report 16682242 (Version 2)
Quarter: 2019Q3

REPORT INFORMATION
  Report Type: Report from Study
  Country: US (occurrence: US)
  Receive Date: 20190808
  Receipt Date: 20190816
  Transmission Date: 20191004
  Serious: No
  Sender: FDA-Public Use
  Company Number: PHEH2019US032840

PATIENT
  Sex: Female

DRUGS (1)
  1. COSENTYX [Suspect]
     Active Substance: SECUKINUMAB
     Indication: ANKYLOSING SPONDYLITIS
     Dosage: 150 MG, QMO
     Route: 058

REACTIONS (6)
  - Viral infection [Recovered/Resolved]
  - Concomitant disease aggravated [Recovered/Resolved]
  - Back pain [Recovering/Resolving]
  - Cough [Recovered/Resolved]
  - Iritis [Recovered/Resolved]
  - Device issue [Unknown]
